FAERS Safety Report 9223708 (Version 1)
Quarter: 2013Q2

REPORT INFORMATION
  Report Type: Spontaneous
  Country: US (occurrence: US)
  Receive Date: 20130410
  Receipt Date: 20130410
  Transmission Date: 20140414
  Serious: Yes (Other)
  Sender: FDA-Public Use
  Company Number: CHPA2013US005932

PATIENT
  Sex: Female

DRUGS (3)
  1. EXCEDRIN TENSION HEADACHE [Suspect]
     Indication: FIBROMYALGIA
     Dosage: UNK, UNK
     Route: 048
  2. EXCEDRIN TENSION HEADACHE [Suspect]
     Indication: HEADACHE
  3. VALIUM [Concomitant]
     Dosage: 2 MG, TID
     Route: 048

REACTIONS (8)
  - Myocardial infarction [Recovered/Resolved]
  - Heart valve incompetence [Not Recovered/Not Resolved]
  - Accident [Not Recovered/Not Resolved]
  - Irritable bowel syndrome [Not Recovered/Not Resolved]
  - Back pain [Not Recovered/Not Resolved]
  - Neck pain [Not Recovered/Not Resolved]
  - Spinal pain [Not Recovered/Not Resolved]
  - Off label use [Unknown]
